FAERS Safety Report 9099075 (Version 1)
Quarter: 2013Q1

REPORT INFORMATION
  Report Type: Spontaneous
  Country: AT (occurrence: AT)
  Receive Date: 20130213
  Receipt Date: 20130213
  Transmission Date: 20140127
  Serious: Yes (Hospitalization)
  Sender: FDA-Public Use
  Company Number: AT-PFIZER INC-2013054018

PATIENT
  Age: 53 Year
  Sex: Male
  Weight: 91 kg

DRUGS (18)
  1. VENLAFAXINE HYDROCHLORIDE [Suspect]
     Dosage: 225 MG, UNK
     Dates: start: 201212, end: 20130107
  2. VENLAFAXINE HYDROCHLORIDE [Suspect]
     Dosage: 300 MG, UNK
     Dates: start: 20130108, end: 20130114
  3. VENLAFAXINE HYDROCHLORIDE [Suspect]
     Dosage: 150 MG, UNK
     Dates: start: 20130115, end: 20130117
  4. VENLAFAXINE HYDROCHLORIDE [Suspect]
     Dosage: 75 MG, UNK
     Dates: start: 20130118, end: 20130120
  5. LYRICA [Suspect]
     Dosage: 300 MG, UNK
     Dates: start: 201212, end: 20130107
  6. LYRICA [Suspect]
     Dosage: 375 MG, UNK
     Dates: start: 20130108
  7. MIRTAZAPINE [Suspect]
     Dosage: 60 MG, UNK
     Dates: start: 201212
  8. VALDOXAN [Suspect]
     Dosage: 25 MG, UNK
     Dates: start: 20130110, end: 20130113
  9. VALDOXAN [Suspect]
     Dosage: 50 MG, UNK
     Dates: start: 20130114
  10. RIVOTRIL [Suspect]
     Dosage: 1.25 MG, UNK
     Dates: start: 201212, end: 20130113
  11. RIVOTRIL [Suspect]
     Dosage: 2 MG, UNK
     Dates: start: 20130114, end: 20130114
  12. RIVOTRIL [Suspect]
     Dosage: 1.5 MG, UNK
     Dates: start: 20130115, end: 20130115
  13. RIVOTRIL [Suspect]
     Dosage: 1 MG, UNK
     Dates: start: 20130116, end: 20130120
  14. RIVOTRIL [Suspect]
     Dosage: 1.5 MG, UNK
     Dates: start: 20130121, end: 20130121
  15. RIVOTRIL [Suspect]
     Dosage: 2 MG, UNK
     Dates: start: 20130122, end: 20130122
  16. RIVOTRIL [Suspect]
     Dosage: 1.5 MG, UNK
     Dates: start: 20130123
  17. CONCOR [Suspect]
     Dosage: 2.5 MG, UNK
     Dates: start: 20130108
  18. NEXIUM [Suspect]
     Dosage: 40 MG, UNK
     Dates: start: 201212

REACTIONS (5)
  - Vertigo [Recovered/Resolved]
  - Gait disturbance [Recovered/Resolved]
  - Fall [Recovered/Resolved]
  - Aggression [Recovered/Resolved]
  - Tension [Recovered/Resolved]
